FAERS Safety Report 4312836-6 (Version None)
Quarter: 2004Q1

REPORT INFORMATION
  Report Type: 
  Country: None (occurrence: None)
  Receive Date: 20040304
  Receipt Date: 20040225
  Transmission Date: 20041129
  Serious: Yes (Death)
  Sender: FDA-Public Use
  Company Number: 2004-DE-00788GD(0)

PATIENT
  Age: 1 Month
  Sex: Male

DRUGS (4)
  1. CYCLOPHOSPHAMIDE [Suspect]
     Indication: BONE MARROW CONDITIONING REGIMEN
     Dosage: 50 MG/KG ONCE DAILY, IV
     Route: 042
  2. BUSULPHAN (BUSULFAN) [Suspect]
     Indication: BONE MARROW CONDITIONING REGIMEN
     Dosage: 5 MG/KG IN DIVIDED DOSES
  3. ATG (ANTILYMPHOCYTE IMMUNOGLOBIN (HORSE)) [Suspect]
     Indication: BONE MARROW CONDITIONING REGIMEN
  4. STEROIDS [Concomitant]

REACTIONS (5)
  - HYPOXIA [None]
  - MULTI-ORGAN FAILURE [None]
  - PNEUMONITIS [None]
  - PULMONARY HYPERTENSION [None]
  - VENOOCCLUSIVE LIVER DISEASE [None]
